FAERS Safety Report 20788002 (Version 2)
Quarter: 2023Q2

REPORT INFORMATION
  Report Type: Other
  Country: US (occurrence: None)
  Receive Date: 20220505
  Receipt Date: 20230615
  Transmission Date: 20230722
  Serious: Yes (Other)
  Sender: FDA-Public Use
  Company Number: US-ROCHE-3083804

PATIENT
  Sex: Male
  Weight: 72.64 kg

DRUGS (14)
  1. OCREVUS [Suspect]
     Active Substance: OCRELIZUMAB
     Indication: Relapsing-remitting multiple sclerosis
     Dosage: DATE OF TREATMENT: 08/JUN/2021, 23/JUN/2021?MOST RECENT INFUSION WAS ON 17-JAN-2023
     Route: 042
     Dates: start: 2020
  2. BENADRYL [Suspect]
     Active Substance: DIPHENHYDRAMINE HYDROCHLORIDE
     Indication: Premedication
     Route: 011
  3. LEVORPHANOL [Concomitant]
     Active Substance: LEVORPHANOL
     Indication: Muscle spasms
     Dates: start: 2021
  4. BACLOFEN [Concomitant]
     Active Substance: BACLOFEN
     Indication: Muscle spasms
  5. PREGABALIN [Concomitant]
     Active Substance: PREGABALIN
     Indication: Neuropathy peripheral
  6. CANNABIS SATIVA SUBSP. INDICA TOP [Concomitant]
     Active Substance: CANNABIS SATIVA SUBSP. INDICA TOP
     Indication: Muscle spasms
  7. TORADOL [Concomitant]
     Active Substance: KETOROLAC TROMETHAMINE
     Indication: Plantar fasciitis
  8. HYDROCODONE [Concomitant]
     Active Substance: HYDROCODONE
  9. PERCOCET [Concomitant]
     Active Substance: ACETAMINOPHEN\OXYCODONE HYDROCHLORIDE
  10. SOLU-MEDROL [Concomitant]
     Active Substance: METHYLPREDNISOLONE SODIUM SUCCINATE
     Dosage: PREMEDICATION
     Route: 042
  11. CLONAZEPAM [Concomitant]
     Active Substance: CLONAZEPAM
  12. VITAMIN D2 [Concomitant]
     Active Substance: ERGOCALCIFEROL
     Indication: Multiple sclerosis
  13. CLONAZEPAM [Concomitant]
     Active Substance: CLONAZEPAM
     Indication: Panic attack
  14. RITALIN [Concomitant]
     Active Substance: METHYLPHENIDATE HYDROCHLORIDE
     Indication: Somnolence

REACTIONS (13)
  - Loss of consciousness [Recovered/Resolved]
  - Pruritus [Recovered/Resolved]
  - Urticaria [Recovered/Resolved]
  - Swelling [Recovered/Resolved]
  - Sleep talking [Recovered/Resolved]
  - COVID-19 [Recovered/Resolved]
  - Somnolence [Recovered/Resolved]
  - Candida infection [Recovered/Resolved]
  - Multiple sclerosis pseudo relapse [Recovered/Resolved]
  - Bladder spasm [Not Recovered/Not Resolved]
  - Arthralgia [Not Recovered/Not Resolved]
  - Neck pain [Not Recovered/Not Resolved]
  - Impaired work ability [Not Recovered/Not Resolved]

NARRATIVE: CASE EVENT DATE: 20200101
